FAERS Safety Report 8448277-X (Version None)
Quarter: 2012Q2

REPORT INFORMATION
  Report Type: 
  Country: None (occurrence: None)
  Receive Date: 20120619
  Receipt Date: 20120613
  Transmission Date: 20120825
  Serious: Yes (Hospitalization)
  Sender: FDA-Public Use
  Company Number: US-PFIZER INC-2012143251

PATIENT
  Sex: Female
  Weight: 86.168 kg

DRUGS (19)
  1. LEVOTHYROXINE SODIUM [Suspect]
     Indication: THYROID OPERATION
     Dosage: 175 UG, DAILY
     Dates: start: 20120307, end: 20120601
  2. FOLIC ACID [Concomitant]
     Dosage: 400 MG, 2X/DAY
     Route: 048
  3. GLIPIZIDE [Concomitant]
     Indication: DIABETES MELLITUS
     Dosage: 10 MG, 2X/DAY
  4. PREDNISONE [Concomitant]
     Indication: OSTEOARTHRITIS
  5. TRICOR [Concomitant]
     Indication: CARDIAC DISORDER
     Dosage: 145 MG, DAILY
     Route: 048
  6. PREMARIN [Concomitant]
     Indication: HYSTERECTOMY
     Dosage: 1.25 MG, DAILY
  7. PRISTIQ [Suspect]
     Indication: DEPRESSION
     Dosage: 50 MG, DAILY
     Route: 048
     Dates: end: 20120601
  8. CARVEDILOL [Concomitant]
     Indication: HYPERTENSION
     Dosage: 25 MG, 2X/DAY
  9. JANUVIA [Concomitant]
     Indication: DIABETES MELLITUS
     Dosage: 100 MG, DAILY
  10. PREDNISONE [Concomitant]
     Indication: LIMB CRUSHING INJURY
  11. VENLAFAXINE HCL [Suspect]
     Dosage: 75 MG, DAILY
     Dates: start: 20120611
  12. HYDROCHLOROTHIAZIDE [Concomitant]
     Indication: JOINT SWELLING
     Dosage: 25 MG, DAILY
  13. ATIVAN [Concomitant]
     Indication: CARDIAC DISORDER
     Dosage: 0.5 MG, DAILY
  14. OMEPRAZOLE [Concomitant]
     Indication: GASTROOESOPHAGEAL REFLUX DISEASE
     Dosage: 40 MG, DAILY
  15. PREDNISONE [Concomitant]
     Indication: ARTHRITIS
     Dosage: UNK,DAILY
     Route: 048
  16. CLONIDINE [Concomitant]
     Indication: HYPERTENSION
     Dosage: 1 MG, AS NEEDED
     Route: 048
  17. VITAMIN B-12 [Concomitant]
     Dosage: UNK, WEEKLY
  18. ACETYLSALICYLIC ACID [Concomitant]
     Dosage: 81 MG, DAILY
  19. LOSARTAN [Concomitant]
     Indication: CARDIAC DISORDER
     Dosage: 100 MG, DAILY

REACTIONS (6)
  - DRUG INTOLERANCE [None]
  - ABDOMINAL DISCOMFORT [None]
  - FEELING ABNORMAL [None]
  - DIARRHOEA [None]
  - MEDICATION RESIDUE [None]
  - MALAISE [None]
